FAERS Safety Report 17855582 (Version 2)
Quarter: 2020Q2

REPORT INFORMATION
  Report Type: Spontaneous
  Country: SK (occurrence: SK)
  Receive Date: 20200603
  Receipt Date: 20200616
  Transmission Date: 20200714
  Serious: Yes (Hospitalization, Other)
  Sender: FDA-Public Use
  Company Number: SK-MYLANLABS-2020M1047611

PATIENT
  Age: 31 Year
  Sex: Male

DRUGS (5)
  1. PERINDOPRIL [Suspect]
     Active Substance: PERINDOPRIL
     Indication: SINUS TACHYCARDIA
     Dosage: UNK
     Route: 065
     Dates: start: 201904, end: 2019
  2. BISOPROLOL [Suspect]
     Active Substance: BISOPROLOL
     Indication: SINUS TACHYCARDIA
     Dosage: UNK
     Route: 065
     Dates: start: 201904, end: 2019
  3. FUROSEMIDE. [Concomitant]
     Active Substance: FUROSEMIDE
     Dosage: UNK (TITRATION)
     Dates: start: 2019
  4. EPLERENONE. [Concomitant]
     Active Substance: EPLERENONE
     Indication: SINUS TACHYCARDIA
     Dosage: UNK
     Route: 065
     Dates: start: 201904
  5. FUROSEMIDE. [Concomitant]
     Active Substance: FUROSEMIDE
     Indication: SINUS TACHYCARDIA
     Dosage: UNK
     Route: 065
     Dates: start: 201904

REACTIONS (6)
  - Renal impairment [Recovered/Resolved]
  - Renal disorder [Unknown]
  - Hypotension [Recovered/Resolved]
  - Dizziness [Recovered/Resolved]
  - Vertigo [Recovered/Resolved]
  - Circulatory collapse [Recovered/Resolved]

NARRATIVE: CASE EVENT DATE: 2019
